FAERS Safety Report 10350662 (Version 1)
Quarter: 2014Q3

REPORT INFORMATION
  Report Type: Spontaneous
  Country: US (occurrence: US)
  Receive Date: 20140730
  Receipt Date: 20140730
  Transmission Date: 20150326
  Serious: Yes (Hospitalization, Other)
  Sender: FDA-Public Use
  Company Number: CHPA2014US009883

PATIENT
  Age: 65 Year
  Sex: Female

DRUGS (6)
  1. EXCEDRIN TENSION HEADACHE [Suspect]
     Active Substance: ACETAMINOPHEN\CAFFEINE
     Indication: MIGRAINE
  2. NEXIUM [Concomitant]
     Active Substance: ESOMEPRAZOLE MAGNESIUM
     Dosage: UNK
     Dates: start: 199808
  3. ZOMIG [Concomitant]
     Active Substance: ZOLMITRIPTAN
     Indication: MIGRAINE
  4. EXCEDRIN TENSION HEADACHE [Suspect]
     Active Substance: ACETAMINOPHEN\CAFFEINE
     Indication: TENSION HEADACHE
     Dosage: 1 DF, UNK
  5. EXCEDRIN TENSION HEADACHE [Suspect]
     Active Substance: ACETAMINOPHEN\CAFFEINE
     Indication: OFF LABEL USE
  6. EXCEDRIN EXTRA STRENGTH [Suspect]
     Active Substance: ACETAMINOPHEN\ASPIRIN\CAFFEINE
     Indication: HEADACHE
     Dosage: 1-2 DF, UP TO 3 TIMES A DAY
     Dates: end: 199808

REACTIONS (8)
  - Dependence [Unknown]
  - Perforated ulcer [Recovered/Resolved]
  - Therapeutic response changed [Unknown]
  - Abdominal pain upper [Unknown]
  - Migraine [Not Recovered/Not Resolved]
  - Incorrect drug administration duration [Unknown]
  - Impaired healing [Unknown]
  - Muscle contractions involuntary [Unknown]

NARRATIVE: CASE EVENT DATE: 199808
